FAERS Safety Report 24938093 (Version 2)
Quarter: 2025Q1

REPORT INFORMATION
  Report Type: Report from Study
  Country: US (occurrence: US)
  Receive Date: 20250206
  Receipt Date: 20250307
  Transmission Date: 20250409
  Serious: Yes (Hospitalization)
  Sender: EISAI
  Company Number: US-Eisai-EC-2025-183405

PATIENT
  Age: 56 Year
  Sex: Male
  Weight: 63.00 kg

DRUGS (6)
  1. LENVATINIB [Suspect]
     Active Substance: LENVATINIB
     Indication: Renal cell carcinoma
     Dates: start: 20240413, end: 20240527
  2. LENVATINIB [Suspect]
     Active Substance: LENVATINIB
     Dates: start: 20240528, end: 20240717
  3. LENVATINIB [Suspect]
     Active Substance: LENVATINIB
     Dates: start: 20240718, end: 20240910
  4. LENVATINIB [Suspect]
     Active Substance: LENVATINIB
     Dates: start: 20240912
  5. EVEROLIMUS [Suspect]
     Active Substance: EVEROLIMUS
     Indication: Renal cell carcinoma
     Dates: start: 20240413, end: 20240910
  6. EVEROLIMUS [Suspect]
     Active Substance: EVEROLIMUS
     Dates: start: 20240912

REACTIONS (1)
  - Arthralgia [Recovered/Resolved]

NARRATIVE: CASE EVENT DATE: 20240909
